FAERS Safety Report 16093220 (Version 1)
Quarter: 2019Q1

REPORT INFORMATION
  Report Type: Not Available
  Country: JP (occurrence: JP)
  Receive Date: 20190320
  Receipt Date: 20190320
  Transmission Date: 20190418
  Serious: Yes (Death, Life-Threatening, Hospitalization, Other)
  Sender: FDA-Public Use
  Company Number: JP-ACCORD-113912

PATIENT
  Age: 69 Year
  Sex: Male

DRUGS (1)
  1. CAPECITABINE. [Suspect]
     Active Substance: CAPECITABINE
     Indication: RECTAL CANCER STAGE III
     Dosage: 15 DAYS

REACTIONS (14)
  - Staphylococcal infection [Unknown]
  - Cytomegalovirus enterocolitis [Fatal]
  - Gastric ulcer [Not Recovered/Not Resolved]
  - Duodenal ulcer [Not Recovered/Not Resolved]
  - Renal failure [Unknown]
  - Multiple organ dysfunction syndrome [Unknown]
  - Sepsis [Unknown]
  - Bone marrow failure [Fatal]
  - Toxicity to various agents [Unknown]
  - Pneumonia [Unknown]
  - Rectal ulcer [Not Recovered/Not Resolved]
  - Metabolic acidosis [Unknown]
  - Bicytopenia [Unknown]
  - Haemorrhage [Fatal]
